FAERS Safety Report 19332456 (Version 1)
Quarter: 2021Q2

REPORT INFORMATION
  Report Type: Spontaneous
  Country: US (occurrence: US)
  Receive Date: 20210529
  Receipt Date: 20210529
  Transmission Date: 20210717
  Serious: Yes (Hospitalization, Other)
  Sender: FDA-Public Use
  Company Number: US-ACCORD-226519

PATIENT
  Age: 54 Year
  Sex: Male

DRUGS (1)
  1. METHOTREXATE. [Suspect]
     Active Substance: METHOTREXATE
     Indication: PSORIASIS
     Dosage: MTX AT 10 MG PER WEEK PRESCRIBED

REACTIONS (7)
  - Thrombocytopenia [Recovered/Resolved]
  - Medication error [Unknown]
  - Toxicity to various agents [Unknown]
  - Neutropenia [Recovered/Resolved]
  - Staphylococcal infection [Recovered/Resolved]
  - Accidental overdose [Unknown]
  - Leukopenia [Recovered/Resolved]
